FAERS Safety Report 20666955 (Version 1)
Quarter: 2022Q2

REPORT INFORMATION
  Report Type: Spontaneous
  Country: TR (occurrence: TR)
  Receive Date: 20220404
  Receipt Date: 20220404
  Transmission Date: 20220720
  Serious: Yes (Other)
  Sender: FDA-Public Use
  Company Number: TR-GLAXOSMITHKLINE-TR2022GSK053177

PATIENT
  Age: 29 Year
  Sex: Female

DRUGS (1)
  1. PAROXETINE HYDROCHLORIDE [Suspect]
     Active Substance: PAROXETINE HYDROCHLORIDE
     Indication: Depressed mood
     Dosage: 20 MG, 1D
     Route: 065

REACTIONS (6)
  - Dystonia [Recovered/Resolved]
  - Muscle spasms [Recovered/Resolved]
  - Pain [Recovered/Resolved]
  - Head deformity [Recovered/Resolved]
  - Emotional distress [Recovered/Resolved]
  - Tremor [Recovered/Resolved]
